FAERS Safety Report 4388437-0 (Version None)
Quarter: 2004Q2

REPORT INFORMATION
  Report Type: 
  Country: None (occurrence: None)
  Receive Date: 20040625
  Receipt Date: 20040614
  Transmission Date: 20050107
  Serious: Yes (Other)
  Sender: FDA-Public Use
  Company Number: HQWYE446514JUN04

PATIENT
  Age: 71 Year
  Sex: Female

DRUGS (18)
  1. CORDAREX (AMIODARONE, INJECTION) [Suspect]
     Indication: CORONARY ARTERY SURGERY
     Dosage: 8.82 MCQ/KG/MIN (863.6 MG/D)
     Route: 042
     Dates: start: 20030531, end: 20030603
  2. DOPAMINE HYDROCHLORIDE [Suspect]
     Indication: CORONARY ARTERY SURGERY
     Dosage: 2.45 MCG/KG/MIN; 2.21 MCG/KG/MIN
     Route: 042
     Dates: start: 20030531, end: 20030603
  3. DOPAMINE HYDROCHLORIDE [Suspect]
     Indication: CORONARY ARTERY SURGERY
     Dosage: 2.45 MCG/KG/MIN; 2.21 MCG/KG/MIN
     Route: 042
     Dates: start: 20030604, end: 20030606
  4. EBRANTIL, URAPIDIL) [Suspect]
     Route: 042
     Dates: start: 20030530, end: 20030603
  5. EBRANTIL, URAPIDIL) [Suspect]
     Route: 042
     Dates: start: 20030604, end: 20030606
  6. POTASSIUM CHLORIDE [Concomitant]
  7. NITROGLYCERIN [Concomitant]
  8. DOBUTREX [Concomitant]
  9. XANEF (ENALAPRIL MALEATE) [Concomitant]
  10. ZINACEF [Concomitant]
  11. PANTOZOL (PANTOPRAZOLE) [Concomitant]
  12. HEPARIN SODIUM [Concomitant]
  13. ALDACTONE [Concomitant]
  14. DIGITOXIN TAB [Concomitant]
  15. SUPRARENIN (EPINEPHRINE) [Concomitant]
  16. LOPIRIN COR (CAPTOPRIL) [Concomitant]
  17. DIPIDOLOR (PIRITRAMIDE) [Concomitant]
  18. METOCLOPRAMIDE HYDROCHLORIDE [Concomitant]

REACTIONS (6)
  - AGRANULOCYTOSIS [None]
  - HAEMOGLOBIN DECREASED [None]
  - PLATELET COUNT DECREASED [None]
  - POSTOPERATIVE RENAL FAILURE [None]
  - RENAL FAILURE ACUTE [None]
  - UNEVALUABLE EVENT [None]
